FAERS Safety Report 13889824 (Version 1)
Quarter: 2017Q3

REPORT INFORMATION
  Report Type: Report from Study
  Country: None (occurrence: US)
  Receive Date: 20170822
  Receipt Date: 20170822
  Transmission Date: 20171127
  Serious: Yes (Hospitalization)
  Sender: FDA-Public Use
  Company Number: US-ABBVIE-17K-163-2075496-00

PATIENT
  Age: 53 Year
  Sex: Male

DRUGS (1)
  1. HUMIRA [Suspect]
     Active Substance: ADALIMUMAB
     Indication: CROHN^S DISEASE
     Route: 058
     Dates: start: 20170816, end: 20170816

REACTIONS (6)
  - Pulse abnormal [Unknown]
  - Vomiting [Unknown]
  - Hyperhidrosis [Unknown]
  - Unresponsive to stimuli [Unknown]
  - General physical condition abnormal [Unknown]
  - Pulse absent [Unknown]

NARRATIVE: CASE EVENT DATE: 20170816
